FAERS Safety Report 7879147-3 (Version None)
Quarter: 2011Q4

REPORT INFORMATION
  Report Type: 
  Country: None (occurrence: None)
  Receive Date: 20111101
  Receipt Date: 20111020
  Transmission Date: 20120403
  Serious: Yes (Hospitalization)
  Sender: FDA-Public Use
  Company Number: US-BAYER-2010-005342

PATIENT
  Age: 20 Year
  Sex: Female
  Weight: 72.562 kg

DRUGS (8)
  1. ZYRTEC [Concomitant]
     Indication: MULTIPLE ALLERGIES
     Dosage: UNK UNK, PRN
  2. RETIN-A MICRO [Concomitant]
     Indication: ACNE
     Dosage: UNK
     Dates: start: 20040101, end: 20080101
  3. IBUPROFEN (ADVIL) [Concomitant]
     Dosage: UNK
  4. MINOCYCLINE HCL [Concomitant]
     Indication: ACNE
     Dosage: UNK
     Dates: start: 20040101, end: 20080101
  5. YAZ [Suspect]
     Indication: ACNE
     Dosage: UNK
     Route: 048
     Dates: start: 20080901, end: 20081201
  6. SULFACETAMIDE [Concomitant]
     Indication: ACNE
     Dosage: UNK
     Dates: start: 20040101, end: 20080101
  7. NSAID'S [Concomitant]
  8. METROGEL [Concomitant]
     Indication: ACNE
     Dosage: UNK
     Dates: start: 20040101, end: 20080101

REACTIONS (10)
  - OEDEMA PERIPHERAL [None]
  - DEEP VEIN THROMBOSIS [None]
  - ANXIETY [None]
  - DYSPNOEA [None]
  - PULMONARY EMBOLISM [None]
  - CHEST PAIN [None]
  - INJURY [None]
  - EMOTIONAL DISTRESS [None]
  - PAIN [None]
  - GENERAL PHYSICAL HEALTH DETERIORATION [None]
